FAERS Safety Report 5069976-6 (Version None)
Quarter: 2006Q3

REPORT INFORMATION
  Report Type: 
  Country: None (occurrence: None)
  Receive Date: 20060731
  Receipt Date: 20060712
  Transmission Date: 20061208
  Serious: Yes (Death, Hospitalization)
  Sender: FDA-Public Use
  Company Number: 6024167

PATIENT
  Age: 62 Year
  Sex: Male

DRUGS (6)
  1. AMIODARONE HCL [Suspect]
     Indication: ATRIAL FIBRILLATION
     Dosage: 400 MG (200 MG, 2 IN 1 D)
     Dates: start: 20060601, end: 20060608
  2. PREVISCAN (20 MG, TABLET) (FLUINDIONE) [Suspect]
     Dosage: 20 MG (20 MG, 1 IN 1 D)
     Dates: start: 20060601, end: 20060608
  3. PAROXETINE (20 MG, FILM-COATED TABLET (PAROXETINE) [Suspect]
     Indication: DYSTHYMIC DISORDER
     Dosage: 20 MG (20 MG, 1 IN 1 D), ORAL
     Route: 048
  4. EQUANIL [Concomitant]
  5. FUROSEMIDE [Concomitant]
  6. EBIXA (MEMANTINE HYDROCHLORIDE) [Concomitant]

REACTIONS (5)
  - CEREBRAL HAEMORRHAGE [None]
  - COAGULATION TIME PROLONGED [None]
  - COMA [None]
  - DRUG INTERACTION [None]
  - INTERNATIONAL NORMALISED RATIO INCREASED [None]
